FAERS Safety Report 10257411 (Version 1)
Quarter: 2014Q2

REPORT INFORMATION
  Report Type: Spontaneous
  Country: US (occurrence: US)
  Receive Date: 20140625
  Receipt Date: 20140625
  Transmission Date: 20141212
  Serious: No
  Sender: FDA-Public Use
  Company Number: US-BAYER-2014-084257

PATIENT
  Age: 38 Year
  Sex: Female

DRUGS (2)
  1. FINACEA [Suspect]
     Indication: ACNE
     Dosage: APPROX FOR A WEEK AND A HALF -- PRESENT.
  2. FINACEA [Suspect]
     Indication: CHLOASMA

REACTIONS (2)
  - Acne [Unknown]
  - Off label use [None]
